FAERS Safety Report 13884466 (Version 3)
Quarter: 2018Q1

REPORT INFORMATION
  Report Type: Spontaneous
  Country: IT (occurrence: IT)
  Receive Date: 20170821
  Receipt Date: 20180307
  Transmission Date: 20180508
  Serious: Yes (Hospitalization, Other)
  Sender: FDA-Public Use
  Company Number: IT-BRISTOL-MYERS SQUIBB COMPANY-BMS-2017-071635

PATIENT
  Age: 77 Year
  Sex: Female

DRUGS (1)
  1. COUMADIN [Suspect]
     Active Substance: WARFARIN SODIUM
     Indication: PRODUCT USED FOR UNKNOWN INDICATION
     Route: 048

REACTIONS (9)
  - Muscle rigidity [Unknown]
  - Loss of consciousness [Unknown]
  - Trismus [Unknown]
  - Diarrhoea [Unknown]
  - Psychomotor hyperactivity [Unknown]
  - Respiration abnormal [Unknown]
  - Vomiting [Unknown]
  - Neurological symptom [Unknown]
  - International normalised ratio increased [Unknown]

NARRATIVE: CASE EVENT DATE: 20160302
